FAERS Safety Report 10928367 (Version 1)
Quarter: 2015Q1

REPORT INFORMATION
  Report Type: Spontaneous
  Country: US (occurrence: None)
  Receive Date: 20150317
  Receipt Date: 20150317
  Transmission Date: 20150721
  Serious: Yes (Hospitalization)
  Sender: FDA-Public Use
  Company Number: None

PATIENT
  Age: 62 Year
  Sex: Male

DRUGS (7)
  1. SOMA [Concomitant]
     Active Substance: CARISOPRODOL
  2. ZELBORAF [Suspect]
     Active Substance: VEMURAFENIB
     Indication: MALIGNANT MELANOMA
     Dosage: 480 MG (2 TABLETS) TWICE DAILY ORAL
     Route: 048
     Dates: start: 20131119, end: 20150316
  3. OXYCODONE [Concomitant]
     Active Substance: OXYCODONE
  4. CLONIDINE. [Concomitant]
     Active Substance: CLONIDINE
  5. HYDROCHLOROTHIAZIDE. [Concomitant]
     Active Substance: HYDROCHLOROTHIAZIDE
  6. METOPROLOL [Concomitant]
     Active Substance: METOPROLOL
  7. TEMAZEPAM. [Concomitant]
     Active Substance: TEMAZEPAM

REACTIONS (1)
  - Cerebral thrombosis [None]

NARRATIVE: CASE EVENT DATE: 20150316
